FAERS Safety Report 23075339 (Version 3)
Quarter: 2024Q1

REPORT INFORMATION
  Report Type: Spontaneous
  Country: US (occurrence: US)
  Receive Date: 20231017
  Receipt Date: 20240202
  Transmission Date: 20240410
  Serious: No
  Sender: FDA-Public Use
  Company Number: US-SA-SAC20231016000444

PATIENT
  Age: 76 Year
  Sex: Female
  Weight: 60.78 kg

DRUGS (14)
  1. DUPIXENT [Suspect]
     Active Substance: DUPILUMAB
     Indication: Dermatitis allergic
     Dosage: 300 MG, QOW
     Route: 058
     Dates: start: 2018
  2. DUPIXENT [Suspect]
     Active Substance: DUPILUMAB
     Indication: Psoriasis
  3. SKYRIZI [Suspect]
     Active Substance: RISANKIZUMAB-RZAA
     Indication: Erythema
     Dosage: UNK
     Route: 065
  4. SHINGRIX [Concomitant]
     Active Substance: RECOMBINANT VARICELLA ZOSTER VIRUS (VZV) GLYCOPROTEIN E
     Indication: Immunisation
     Dosage: UNKHINGRIX 50 MCG/0.5 KIT
  5. ESTRADIOL [Concomitant]
     Active Substance: ESTRADIOL
     Dosage: UNK
  6. CITALOPRAM [Concomitant]
     Active Substance: CITALOPRAM HYDROBROMIDE
  7. CLOBETASOL PROPIONATE [Concomitant]
     Active Substance: CLOBETASOL PROPIONATE
  8. FLUOROURACIL [Concomitant]
     Active Substance: FLUOROURACIL
  9. HYDROCORTISONE [Concomitant]
     Active Substance: HYDROCORTISONE
  10. IMIQUIMOD [Concomitant]
     Active Substance: IMIQUIMOD
  11. OMEPRAZOLE [Concomitant]
     Active Substance: OMEPRAZOLE
  12. RHOFADE [Concomitant]
     Active Substance: OXYMETAZOLINE HYDROCHLORIDE
  13. SPIRONOLACTONE [Concomitant]
     Active Substance: SPIRONOLACTONE
  14. TRIAMCINOLONE ACETONIDE [Concomitant]
     Active Substance: TRIAMCINOLONE ACETONIDE

REACTIONS (11)
  - Ear infection [Unknown]
  - Rash macular [Unknown]
  - Tooth infection [Unknown]
  - Tooth fracture [Unknown]
  - COVID-19 [Recovered/Resolved]
  - Herpes zoster [Unknown]
  - Skin exfoliation [Unknown]
  - Erythema [Recovered/Resolved]
  - Sinusitis [Unknown]
  - Psoriasis [Unknown]
  - Product use in unapproved indication [Unknown]

NARRATIVE: CASE EVENT DATE: 20180101
